FAERS Safety Report 8558267-4 (Version None)
Quarter: 2012Q3

REPORT INFORMATION
  Report Type: 
  Country: None (occurrence: None)
  Receive Date: 20120801
  Receipt Date: 20120620
  Transmission Date: 20120928
  Serious: Yes (Hospitalization)
  Sender: FDA-Public Use
  Company Number: JP-009507513-1205USA05003

PATIENT

DRUGS (5)
  1. ISENTRESS [Suspect]
     Indication: HIV INFECTION
     Dosage: DIVIDED DOSE FREQUENCY UNKNOWN
     Route: 048
     Dates: start: 20100608
  2. ISENTRESS [Suspect]
     Dosage: DIVIDED DOSE FREQUENCY U
     Route: 048
     Dates: start: 20100608
  3. TRUVADA [Suspect]
     Indication: HIV INFECTION
     Dosage: DIVIDED DOSE FREQUENCY U
     Route: 048
     Dates: start: 20100608
  4. PEPCID RPD [Concomitant]
     Indication: GASTRITIS
     Dosage: 20 MG, BID
     Route: 048
     Dates: start: 20100409
  5. FAMOTIDINE [Concomitant]
     Indication: GASTRITIS
     Route: 048
     Dates: start: 20100409

REACTIONS (2)
  - PNEUMOCYSTIS JIROVECI PNEUMONIA [None]
  - IMMUNE RECONSTITUTION SYNDROME [None]
